FAERS Safety Report 12324724 (Version 1)
Quarter: 2016Q2

REPORT INFORMATION
  Report Type: Spontaneous
  Country: US (occurrence: US)
  Receive Date: 20160502
  Receipt Date: 20160502
  Transmission Date: 20160815
  Serious: No
  Sender: FDA-Public Use
  Company Number: US-ABBVIE-15P-163-1432049-00

PATIENT
  Age: 62 Year
  Sex: Male

DRUGS (3)
  1. ANDROGEL [Suspect]
     Active Substance: TESTOSTERONE
     Dosage: 2 PUMPS DAILY
     Route: 061
     Dates: start: 201506
  2. ANDROGEL [Suspect]
     Active Substance: TESTOSTERONE
     Dosage: 4 PUMPS DAILY
     Route: 061
     Dates: start: 201504, end: 201506
  3. ANDROGEL [Suspect]
     Active Substance: TESTOSTERONE
     Indication: HYPOGONADISM
     Dosage: 2 PUMPS DAILY
     Route: 061
     Dates: start: 201503, end: 201504

REACTIONS (2)
  - Blood testosterone increased [Unknown]
  - Arthralgia [Not Recovered/Not Resolved]

NARRATIVE: CASE EVENT DATE: 201503
